FAERS Safety Report 20417035 (Version 2)
Quarter: 2022Q1

REPORT INFORMATION
  Report Type: Report from Study
  Country: FR (occurrence: FR)
  Receive Date: 20220202
  Receipt Date: 20220207
  Transmission Date: 20220423
  Serious: Yes (Death, Other)
  Sender: FDA-Public Use
  Company Number: FR-PFIZER INC-202200150661

PATIENT
  Age: 51 Year
  Sex: Female

DRUGS (6)
  1. PREGABALIN [Suspect]
     Active Substance: PREGABALIN
     Dosage: UNK
  2. CODEINE [Suspect]
     Active Substance: CODEINE
  3. METHADONE [Suspect]
     Active Substance: METHADONE HYDROCHLORIDE
  4. MORPHINE [Suspect]
     Active Substance: MORPHINE
  5. DIAZEPAM [Suspect]
     Active Substance: DIAZEPAM
     Dosage: UNK
  6. QUETIAPINE [Suspect]
     Active Substance: QUETIAPINE
     Dosage: UNK

REACTIONS (3)
  - Overdose [Fatal]
  - Poisoning [Fatal]
  - Intentional product misuse [Fatal]
